FAERS Safety Report 9603290 (Version 1)
Quarter: 2013Q4

REPORT INFORMATION
  Report Type: Spontaneous
  Country: IT (occurrence: IT)
  Receive Date: 20131007
  Receipt Date: 20131007
  Transmission Date: 20140711
  Serious: Yes (Other)
  Sender: FDA-Public Use
  Company Number: IT-BAXTER-2013BAX038132

PATIENT
  Age: 65 Year
  Sex: Male

DRUGS (3)
  1. FLUCONAZOLO BAXTER [Suspect]
     Indication: FUNGAL PERITONITIS
     Route: 042
     Dates: start: 20130822, end: 20130906
  2. PIPERACILLIN/TAZOBACTAM [Suspect]
     Indication: FUNGAL PERITONITIS
     Route: 065
     Dates: start: 20130809, end: 20130906
  3. CASPOFUNGIN [Concomitant]
     Indication: PRODUCT USED FOR UNKNOWN INDICATION
     Route: 065
     Dates: start: 201309

REACTIONS (1)
  - Hepatic failure [Recovering/Resolving]
